FAERS Safety Report 6980664-9 (Version None)
Quarter: 2010Q3

REPORT INFORMATION
  Report Type: 
  Country: None (occurrence: None)
  Receive Date: 20100914
  Receipt Date: 20100910
  Transmission Date: 20110219
  Serious: Yes (Other)
  Sender: FDA-Public Use
  Company Number: CHPA2010US08973

PATIENT
  Age: 56 Year
  Sex: Female

DRUGS (3)
  1. VOLTAREN [Suspect]
     Indication: NECK PAIN
     Dosage: 1 GRAM ON HIP; 1.5 GRAMS ON SHOULDER, BID
     Route: 061
     Dates: start: 20100501
  2. VOLTAREN [Suspect]
     Indication: BACK PAIN
  3. VOLTAREN [Suspect]
     Indication: MUSCULOSKELETAL PAIN

REACTIONS (9)
  - CONCOMITANT DISEASE AGGRAVATED [None]
  - DIZZINESS [None]
  - DRUG ADMINISTERED AT INAPPROPRIATE SITE [None]
  - HYPERHIDROSIS [None]
  - HYPOTENSION [None]
  - OFF LABEL USE [None]
  - SKELETAL INJURY [None]
  - SYNCOPE [None]
  - WRONG TECHNIQUE IN DRUG USAGE PROCESS [None]
